FAERS Safety Report 7292877-X (Version None)
Quarter: 2011Q1

REPORT INFORMATION
  Report Type: 
  Country: None (occurrence: None)
  Receive Date: 20110215
  Receipt Date: 20110202
  Transmission Date: 20110831
  Serious: Yes (Hospitalization, Other)
  Sender: FDA-Public Use
  Company Number: PHFR2010IE01755

PATIENT
  Sex: Male

DRUGS (8)
  1. CLOZARIL [Suspect]
     Dosage: 500 MG, QD
     Route: 048
     Dates: start: 20100801, end: 20100907
  2. DEPIXOL [Concomitant]
     Dosage: 200 MG/WEEKLY
     Route: 030
     Dates: start: 20100924, end: 20101001
  3. RISPERDONE [Concomitant]
     Dosage: 1 MG, BID
     Route: 048
     Dates: start: 20100801, end: 20100907
  4. CLOZARIL [Suspect]
     Dosage: UNK MG, UNK
     Route: 048
     Dates: start: 20101007
  5. AMISULPRIDE [Concomitant]
     Dosage: UNK DF, UNK
  6. CLOZARIL [Suspect]
     Dosage: UNK MG, UNK
     Route: 048
     Dates: start: 20101007
  7. OLANZAPINE [Concomitant]
     Dosage: 20 MG, UNK
     Dates: start: 20100924, end: 20101005
  8. EPILIM CHRONO [Concomitant]
     Dosage: 300 MG, BID
     Route: 048
     Dates: start: 20100801, end: 20100907

REACTIONS (2)
  - SCHIZOPHRENIA [None]
  - SUBSTANCE ABUSE [None]
